FAERS Safety Report 9984681 (Version 2)
Quarter: 2014Q3

REPORT INFORMATION
  Report Type: Spontaneous
  Country: FR (occurrence: FR)
  Receive Date: 20140307
  Receipt Date: 20140821
  Transmission Date: 20150326
  Serious: Yes (Life-Threatening, Hospitalization)
  Sender: FDA-Public Use
  Company Number: PHHY2014FR027902

PATIENT
  Age: 40 Year
  Sex: Male

DRUGS (15)
  1. VALACICLOVIR [Suspect]
     Active Substance: VALACYCLOVIR HYDROCHLORIDE
     Dosage: 1000 MG, BID
     Route: 048
     Dates: start: 20140128, end: 20140203
  2. CIFLOX [Suspect]
     Active Substance: CIPROFLOXACIN
     Dosage: 2 DF, QD
     Route: 048
     Dates: start: 20140131, end: 20140203
  3. INEXIUM//ESOMEPRAZOLE SODIUM [Suspect]
     Active Substance: ESOMEPRAZOLE
     Dosage: 40 MG, UNK
     Route: 048
     Dates: start: 20140112, end: 20140204
  4. ENDOXAN [Concomitant]
     Active Substance: CYCLOPHOSPHAMIDE
     Dosage: UNK UKN, UNK
  5. SANDIMMUNE [Suspect]
     Active Substance: CYCLOSPORINE
     Indication: PROPHYLAXIS
     Dosage: 250 MG, QD
     Route: 042
     Dates: start: 20140114, end: 20140129
  6. VALACICLOVIR [Suspect]
     Active Substance: VALACYCLOVIR HYDROCHLORIDE
     Indication: PROPHYLAXIS
     Dosage: 1000 MG, BID
     Route: 048
     Dates: start: 20140107, end: 20140115
  7. METHOTREXATE [Concomitant]
     Active Substance: METHOTREXATE
     Dosage: UNK UKN, UNK
  8. ORACILLINE [Suspect]
     Active Substance: PENICILLIN V
     Dosage: 2 DF, QD
     Route: 048
     Dates: start: 20140131, end: 20140205
  9. LAROXYL [Suspect]
     Active Substance: AMITRIPTYLINE
     Dosage: 10 DF, QD
     Route: 048
     Dates: start: 20140123, end: 20140204
  10. BUSILVEX [Concomitant]
     Active Substance: BUSULFAN
     Dosage: UNK UKN, UNK
  11. NEORAL [Suspect]
     Active Substance: CYCLOSPORINE
     Indication: PROPHYLAXIS
     Dosage: UNK UKN, UNK
     Route: 048
     Dates: start: 20140130, end: 20140206
  12. CIPROFLOXACIN. [Suspect]
     Active Substance: CIPROFLOXACIN
     Dosage: 400 MG, BID
     Route: 042
     Dates: start: 20140123, end: 20140131
  13. ANTILYMPHOCYTE SERUM [Concomitant]
     Active Substance: THYMOCYTE IMMUNE GLOBULIN NOS
     Dosage: UNK UKN, UNK
  14. SANDIMMUNE [Suspect]
     Active Substance: CYCLOSPORINE
     Dosage: 250 MG, QD
     Route: 042
     Dates: start: 20140206, end: 20140207
  15. ANTIBIOTICS [Concomitant]
     Active Substance: UNSPECIFIED INGREDIENT
     Dosage: UNK UKN, UNK

REACTIONS (4)
  - Renal tubular necrosis [Recovered/Resolved]
  - Nephrocalcinosis [Recovered/Resolved]
  - Haemolytic uraemic syndrome [Not Recovered/Not Resolved]
  - Renal failure acute [Recovered/Resolved]

NARRATIVE: CASE EVENT DATE: 20140203
